FAERS Safety Report 8493243-1 (Version None)
Quarter: 2012Q3

REPORT INFORMATION
  Report Type: 
  Country: None (occurrence: None)
  Receive Date: 20120706
  Receipt Date: 20120629
  Transmission Date: 20120928
  Serious: Yes (Hospitalization, Other)
  Sender: FDA-Public Use
  Company Number: PHHY2010JP82079

PATIENT
  Age: 51 Year
  Sex: Female

DRUGS (40)
  1. CEFACLOR [Concomitant]
     Dosage: 2 DF, UNK
     Route: 048
     Dates: start: 20100623, end: 20100625
  2. ADALAT [Concomitant]
     Indication: HYPERTENSION
     Dosage: 60 MG, UNK
     Route: 048
     Dates: start: 20100612
  3. ATARAX [Concomitant]
     Indication: ANXIETY
     Dosage: 25 MG, UNK
     Route: 048
     Dates: start: 20100617, end: 20100619
  4. PANCREAZE [Concomitant]
     Dosage: 3 DF, UNK
     Route: 048
     Dates: start: 20100611
  5. GAMOFA [Concomitant]
     Dosage: 10 MG, UNK
     Route: 048
     Dates: end: 20100609
  6. PREDNISOLONE SODIUM SUCCINATE INJ [Concomitant]
     Indication: RENAL TRANSPLANT
     Dosage: 40 MG, UNK
     Route: 042
     Dates: start: 20100612
  7. PROGRAF [Concomitant]
     Dosage: 18 MG, UNK
     Route: 048
     Dates: end: 20100612
  8. TACROLIMUS [Concomitant]
  9. AMLODIPINE [Concomitant]
     Indication: HYPERTENSION
     Dosage: 5 MG, UNK
     Route: 048
     Dates: start: 20100607
  10. SUCRALFATE [Concomitant]
     Indication: PEPTIC ULCER
     Dosage: 3 G, UNK
     Route: 048
     Dates: start: 20100611
  11. ALOSENN [Concomitant]
     Dosage: 1 DF, UNK
     Route: 048
     Dates: start: 20100627
  12. GAMOFA [Concomitant]
     Dosage: 20 MG, UNK
     Route: 048
     Dates: start: 20100606, end: 20100610
  13. PREDNISOLONE SODIUM SUCCINATE INJ [Concomitant]
     Indication: KIDNEY TRANSPLANT REJECTION
     Dosage: 40 MG, UNK
     Route: 042
     Dates: start: 20100610
  14. PREDNISOLONE SODIUM SUCCINATE INJ [Concomitant]
     Dosage: 10 MG, UNK
     Route: 048
     Dates: start: 20100613
  15. PROGRAF [Concomitant]
     Indication: KIDNEY TRANSPLANT REJECTION
     Dosage: 14 MG, UNK
     Route: 048
  16. PROGRAF [Concomitant]
     Dosage: 15 MG, UNK
     Route: 048
  17. ALLEGRA [Concomitant]
     Indication: HYPERSENSITIVITY
     Dosage: 2 DF, UNK
     Route: 048
     Dates: start: 20100617, end: 20100630
  18. DOXAZOSIN MESYLATE [Concomitant]
     Dosage: 4 MG, UNK
     Route: 048
  19. CEFAZOLIN SODIUM [Concomitant]
     Dosage: UNK
     Route: 042
     Dates: start: 20100610, end: 20100612
  20. NICARDIPINE HCL [Concomitant]
     Indication: HYPERTENSION
     Dosage: UNK
     Route: 042
     Dates: start: 20100611, end: 20100612
  21. NEORAL [Suspect]
     Indication: RENAL TRANSPLANT
     Dosage: 400 MG, DAILY
     Route: 048
     Dates: start: 20100608, end: 20100609
  22. SIMULECT [Concomitant]
     Indication: RENAL TRANSPLANT
     Dosage: 20 MG, UNK
     Route: 042
     Dates: start: 20100610
  23. SIMULECT [Concomitant]
     Dosage: 20 MG, UNK
     Route: 042
     Dates: start: 20100614
  24. DOXAZOSIN MESYLATE [Concomitant]
     Indication: HYPERTENSION
     Dosage: 1 MG, UNK
     Route: 048
     Dates: start: 20100607
  25. ASPIRIN [Concomitant]
     Dosage: 100 MG, UNK
     Route: 048
     Dates: start: 20100618
  26. SODIUM PICOSULFATE [Concomitant]
     Dosage: UNK
     Route: 048
     Dates: start: 20100620
  27. SANDIMMUNE [Suspect]
     Dosage: 200 MG, DAILY
     Route: 041
     Dates: start: 20100611, end: 20100611
  28. RABEPRAZOLE SODIUM [Concomitant]
     Indication: PEPTIC ULCER
     Dosage: 10 MG, UNK
     Route: 048
     Dates: start: 20100618
  29. PREDNISOLONE SODIUM SUCCINATE INJ [Concomitant]
     Dosage: 30 MG, UNK
     Route: 048
     Dates: start: 20100613
  30. PREDNISOLONE SODIUM SUCCINATE INJ [Concomitant]
     Dosage: 20 MG, UNK
     Route: 048
     Dates: start: 20100613
  31. LASIX [Concomitant]
     Indication: POLYURIA
     Dosage: 40 MG, UNK
     Route: 048
     Dates: start: 20100625
  32. SPANIDIN [Concomitant]
     Indication: KIDNEY TRANSPLANT REJECTION
     Dosage: 150 MG, UNK
     Route: 042
     Dates: start: 20100603, end: 20100609
  33. VENILON [Concomitant]
     Dosage: UNK
     Route: 042
     Dates: start: 20100610, end: 20100613
  34. SANDIMMUNE [Suspect]
     Indication: RENAL TRANSPLANT
     Dosage: 175 MG, DAILY
     Route: 041
     Dates: end: 20100611
  35. CELLCEPT [Concomitant]
     Dosage: UNK
     Route: 048
     Dates: start: 20100601
  36. NAFAMOSTAT [Concomitant]
     Dosage: 100 MG, UNK
     Route: 042
     Dates: start: 20100610, end: 20100617
  37. MEDROL [Concomitant]
     Dosage: UNK
     Route: 048
     Dates: start: 20100601
  38. CARVEDILOL [Concomitant]
     Indication: HYPERTENSION
     Dosage: 2.5 MG, UNK
     Route: 048
     Dates: start: 20100607, end: 20100611
  39. ALOSENN [Concomitant]
     Dosage: 2 DF, UNK
     Route: 048
     Dates: start: 20100607
  40. BUSCOPAN [Concomitant]
     Indication: ANALGESIC THERAPY
     Dosage: UNK
     Route: 042
     Dates: start: 20100605

REACTIONS (9)
  - HAEMOLYTIC URAEMIC SYNDROME [None]
  - ANXIETY [None]
  - RENAL TUBULAR NECROSIS [None]
  - BLOOD LACTATE DEHYDROGENASE INCREASED [None]
  - RENAL IMPAIRMENT [None]
  - RED BLOOD CELL ABNORMALITY [None]
  - PLATELET COUNT INCREASED [None]
  - PLATELET COUNT DECREASED [None]
  - HAEMOLYTIC ANAEMIA [None]
